FAERS Safety Report 8223864-2 (Version None)
Quarter: 2012Q1

REPORT INFORMATION
  Report Type: 
  Country: None (occurrence: None)
  Receive Date: 20120321
  Receipt Date: 20120314
  Transmission Date: 20120608
  Serious: Yes (Other)
  Sender: FDA-Public Use
  Company Number: US-PFIZER INC-2012068692

PATIENT
  Sex: Male

DRUGS (1)
  1. NEURONTIN [Suspect]
     Dosage: 1200 MG, 2X/DAY (600 MG 2BY MOUTH TWICE DAILY)
     Route: 048

REACTIONS (3)
  - PERSONALITY DISORDER [None]
  - MEMORY IMPAIRMENT [None]
  - EPILEPSY [None]
